FAERS Safety Report 7737228-9 (Version None)
Quarter: 2011Q3

REPORT INFORMATION
  Report Type: 
  Country: None (occurrence: None)
  Receive Date: 20110908
  Receipt Date: 20110902
  Transmission Date: 20111222
  Serious: Yes (Other)
  Sender: FDA-Public Use
  Company Number: CN-ABBOTT-11P-035-0729372-00

PATIENT
  Age: 25 Year
  Sex: Male

DRUGS (3)
  1. DEPAKENE [Suspect]
     Indication: EPILEPSY
     Route: 048
     Dates: start: 20100504, end: 20101001
  2. DEPAKENE [Suspect]
     Route: 048
     Dates: start: 20101001, end: 20110601
  3. DEPAKENE [Suspect]
     Route: 048
     Dates: start: 20110601

REACTIONS (2)
  - PRODUCT COUNTERFEIT [None]
  - EPILEPSY [None]
